FAERS Safety Report 7328754-5 (Version None)
Quarter: 2011Q1

REPORT INFORMATION
  Report Type: 
  Country: None (occurrence: None)
  Receive Date: 20110303
  Receipt Date: 20110218
  Transmission Date: 20110831
  Serious: Yes (Other)
  Sender: FDA-Public Use
  Company Number: PHHY2011PT10246

PATIENT
  Sex: Male

DRUGS (1)
  1. ACLASTA [Suspect]
     Dosage: UNK
     Dates: start: 20110208

REACTIONS (4)
  - POLLAKIURIA [None]
  - URINARY TRACT INFECTION [None]
  - CHROMATURIA [None]
  - BLOOD URINE PRESENT [None]
